FAERS Safety Report 20918290 (Version 2)
Quarter: 2022Q4

REPORT INFORMATION
  Report Type: Spontaneous
  Country: US (occurrence: US)
  Receive Date: 20220606
  Receipt Date: 20221213
  Transmission Date: 20230113
  Serious: No
  Sender: FDA-Public Use
  Company Number: US-BRISTOL-MYERS SQUIBB COMPANY-2022-036926

PATIENT
  Age: 59 Year
  Sex: Female

DRUGS (1)
  1. REVLIMID [Suspect]
     Active Substance: LENALIDOMIDE
     Indication: Plasma cell myeloma
     Dosage: FREQUENCY: ONCE DAILY 21 DAYS ON AND 7DAYS OFF.
     Route: 048
     Dates: start: 20210610

REACTIONS (4)
  - Tremor [Unknown]
  - Pain [Unknown]
  - Hypoaesthesia [Unknown]
  - Feeling abnormal [Unknown]
